FAERS Safety Report 6103042-3 (Version None)
Quarter: 2009Q1

REPORT INFORMATION
  Report Type: 
  Country: None (occurrence: None)
  Receive Date: 20090305
  Receipt Date: 20090219
  Transmission Date: 20090719
  Serious: Yes (Other)
  Sender: FDA-Public Use
  Company Number: DK-BAYER-200915050GPV

PATIENT

DRUGS (1)
  1. CIPRO HC [Suspect]
     Indication: MIDDLE EAR EFFUSION
     Route: 050

REACTIONS (5)
  - BALANCE DISORDER [None]
  - DIZZINESS [None]
  - NAUSEA [None]
  - SUDDEN HEARING LOSS [None]
  - VOMITING [None]
